FAERS Safety Report 9685273 (Version 1)
Quarter: 2013Q4

REPORT INFORMATION
  Report Type: Spontaneous
  Country: US (occurrence: None)
  Receive Date: 20131112
  Receipt Date: 20131112
  Transmission Date: 20140711
  Serious: Yes (Hospitalization)
  Sender: FDA-Public Use
  Company Number: None

PATIENT
  Age: 59 Year
  Sex: 0
  Weight: 104.7 kg

DRUGS (2)
  1. MORPHINE [Suspect]
     Indication: PAIN
     Route: 030
     Dates: start: 20131009, end: 20131009
  2. MORPHINE [Suspect]
     Indication: PAIN
     Route: 048
     Dates: start: 20131008, end: 20131009

REACTIONS (1)
  - Acute respiratory failure [None]
